FAERS Safety Report 11517496 (Version 1)
Quarter: 2015Q3

REPORT INFORMATION
  Report Type: Spontaneous
  Country: JP (occurrence: JP)
  Receive Date: 20150917
  Receipt Date: 20150917
  Transmission Date: 20151125
  Serious: Yes (Hospitalization, Other)
  Sender: FDA-Public Use
  Company Number: JP-GLAXOSMITHKLINE-JP2014JPN012519

PATIENT
  Age: 3 Year
  Sex: Male

DRUGS (6)
  1. DEXAMETHASONE. [Suspect]
     Active Substance: DEXAMETHASONE
     Route: 065
  2. MIDAZOLAM [Suspect]
     Active Substance: MIDAZOLAM\MIDAZOLAM HYDROCHLORIDE
     Route: 042
  3. CLONAZEPAM. [Suspect]
     Active Substance: CLONAZEPAM
     Route: 048
  4. ALFACALCIDOL [Suspect]
     Active Substance: ALFACALCIDOL
     Route: 048
  5. ACYCLOVIR. [Suspect]
     Active Substance: ACYCLOVIR
     Dosage: UNK
     Route: 042
  6. CALCIUM LACTATE [Suspect]
     Active Substance: CALCIUM LACTATE
     Route: 065

REACTIONS (16)
  - Perivascular dermatitis [Recovering/Resolving]
  - Drug eruption [Recovering/Resolving]
  - Oral disorder [Recovering/Resolving]
  - Palmar erythema [Recovering/Resolving]
  - Conjunctivitis [Recovering/Resolving]
  - Eosinophil count increased [Recovering/Resolving]
  - Erythema [Recovering/Resolving]
  - Lymphocytic infiltration [Recovering/Resolving]
  - Epidermal necrosis [Recovering/Resolving]
  - Erythema multiforme [Recovering/Resolving]
  - Vulvar erosion [Recovering/Resolving]
  - Stevens-Johnson syndrome [Recovering/Resolving]
  - Mucous membrane disorder [Recovering/Resolving]
  - Plantar erythema [Recovering/Resolving]
  - Pyrexia [Recovering/Resolving]
  - Lip erosion [Recovering/Resolving]
